FAERS Safety Report 12839069 (Version 3)
Quarter: 2016Q4

REPORT INFORMATION
  Report Type: Spontaneous
  Country: AU (occurrence: AU)
  Receive Date: 20161012
  Receipt Date: 20161215
  Transmission Date: 20170207
  Serious: Yes (Other)
  Sender: FDA-Public Use
  Company Number: AU-BEH-2016073988

PATIENT
  Sex: Male

DRUGS (1)
  1. PRIVIGEN [Suspect]
     Active Substance: HUMAN IMMUNOGLOBULIN G
     Indication: MULTIFOCAL MOTOR NEUROPATHY
     Dosage: 1.2 MG/KG, UNK
     Route: 042
     Dates: start: 201604

REACTIONS (2)
  - Multifocal motor neuropathy [Unknown]
  - Physical disability [Unknown]
